FAERS Safety Report 22536196 (Version 1)
Quarter: 2023Q2

REPORT INFORMATION
  Report Type: Spontaneous
  Country: US (occurrence: None)
  Receive Date: 20230607
  Receipt Date: 20230607
  Transmission Date: 20230721
  Serious: No
  Sender: FDA-Public Use
  Company Number: None

PATIENT
  Sex: Male

DRUGS (28)
  1. ABIRATERONE ACETATE [Suspect]
     Active Substance: ABIRATERONE ACETATE
     Indication: Prostate cancer
     Dosage: OTHER QUANTITY : 4T;?FREQUENCY : DAILY;?
     Route: 048
  2. CHROMIUM PICLINATE [Concomitant]
  3. LEXAPRO [Concomitant]
     Active Substance: ESCITALOPRAM OXALATE
  4. CARDURA [Concomitant]
     Active Substance: DOXAZOSIN MESYLATE
  5. CRESTOR [Concomitant]
     Active Substance: ROSUVASTATIN CALCIUM
  6. PROTONIX [Concomitant]
     Active Substance: PANTOPRAZOLE SODIUM
  7. NORVASC [Concomitant]
     Active Substance: AMLODIPINE BESYLATE
  8. ATIVAN [Concomitant]
     Active Substance: LORAZEPAM
  9. XGEVA SQ SOLUTION [Concomitant]
  10. FIRMAGON [Concomitant]
     Active Substance: DEGARELIX ACETATE
  11. VITAMIN D3 [Concomitant]
     Active Substance: CHOLECALCIFEROL
  12. FLONASE [Concomitant]
     Active Substance: FLUTICASONE PROPIONATE
  13. BETIMOL [Concomitant]
     Active Substance: TIMOLOL
  14. CELEBREX [Concomitant]
     Active Substance: CELECOXIB
  15. NORCO [Concomitant]
     Active Substance: ACETAMINOPHEN\HYDROCODONE BITARTRATE
  16. ACETAMINOPHEN [Concomitant]
     Active Substance: ACETAMINOPHEN
  17. PROCTOCARE [Concomitant]
  18. AYR NASAL [Concomitant]
  19. ZYRTEC [Concomitant]
     Active Substance: CETIRIZINE HYDROCHLORIDE
  20. TOPICORT [Concomitant]
     Active Substance: DESOXIMETASONE
  21. ASPIRIN [Concomitant]
     Active Substance: ASPIRIN
  22. CALCIUM CITRATE [Concomitant]
     Active Substance: CALCIUM CITRATE
  23. OMEGA 3 [Concomitant]
     Active Substance: CAPSAICIN
  24. DAILY MULTIPLE VITAMINS [Concomitant]
  25. LUTEIN ORAL [Concomitant]
  26. TRAZODONE [Concomitant]
     Active Substance: TRAZODONE HYDROCHLORIDE
  27. PREDNISONE [Concomitant]
     Active Substance: PREDNISONE
  28. LATANOPROST [Concomitant]
     Active Substance: LATANOPROST

REACTIONS (2)
  - Prostate cancer [None]
  - Disease progression [None]
